FAERS Safety Report 24198829 (Version 4)
Quarter: 2024Q4

REPORT INFORMATION
  Report Type: Report from Study
  Country: US (occurrence: US)
  Receive Date: 20240812
  Receipt Date: 20241006
  Transmission Date: 20250114
  Serious: No
  Sender: ALEXION PHARMACEUTICALS
  Company Number: US-AstraZeneca-CH-00680185A

PATIENT

DRUGS (8)
  1. ULTOMIRIS [Suspect]
     Active Substance: RAVULIZUMAB-CWVZ
     Indication: Myasthenia gravis
     Dosage: UNK. UNK, EVERY SIX WEEKS
     Route: 065
  2. ULTOMIRIS [Suspect]
     Active Substance: RAVULIZUMAB-CWVZ
     Dosage: UNK. UNK, EVERY SIX WEEKS
  3. ULTOMIRIS [Suspect]
     Active Substance: RAVULIZUMAB-CWVZ
     Dosage: UNK. UNK, EVERY SIX WEEKS
     Route: 065
  4. ULTOMIRIS [Suspect]
     Active Substance: RAVULIZUMAB-CWVZ
     Dosage: UNK. UNK, EVERY SIX WEEKS
  5. SOLIRIS [Suspect]
     Active Substance: ECULIZUMAB
     Indication: Myasthenia gravis
     Route: 065
  6. SOLIRIS [Suspect]
     Active Substance: ECULIZUMAB
  7. SOLIRIS [Suspect]
     Active Substance: ECULIZUMAB
     Route: 065
  8. SOLIRIS [Suspect]
     Active Substance: ECULIZUMAB

REACTIONS (4)
  - Drug effect less than expected [Unknown]
  - Symptom recurrence [Unknown]
  - Eyelid ptosis [Unknown]
  - Off label use [Unknown]
